FAERS Safety Report 9527074 (Version 1)
Quarter: 2013Q3

REPORT INFORMATION
  Report Type: Spontaneous
  Country: US (occurrence: US)
  Receive Date: 20130916
  Receipt Date: 20130916
  Transmission Date: 20140515
  Serious: Yes (Other)
  Sender: FDA-Public Use
  Company Number: US-TEVA-377215USA

PATIENT
  Sex: Male

DRUGS (4)
  1. FOLINIC ACID [Suspect]
     Route: 041
  2. ZALTRAP ( ZIV-AFLIBERCEPT) [Suspect]
  3. FLUOROURACIL [Suspect]
  4. IRINOTECAN [Suspect]

REACTIONS (1)
  - Diarrhoea [Unknown]
